FAERS Safety Report 5990728-4 (Version None)
Quarter: 2008Q4

REPORT INFORMATION
  Report Type: 
  Country: None (occurrence: None)
  Receive Date: 20081211
  Receipt Date: 20081204
  Transmission Date: 20090506
  Serious: Yes (Disabling, Other)
  Sender: FDA-Public Use
  Company Number: JP-ASTRAZENECA-2008AP01755

PATIENT
  Age: 10 Month
  Sex: Female

DRUGS (1)
  1. XYLOCAINE [Suspect]
     Indication: EPIDURAL ANAESTHESIA
     Dosage: 30 ML OF XYLOCAINE POLYAMP 1 % IN 8 HOURS DURING OPERATION.
     Route: 008
     Dates: start: 20080201, end: 20080201

REACTIONS (4)
  - CONVULSION [None]
  - DRUG TOXICITY [None]
  - HYPOXIC ENCEPHALOPATHY [None]
  - VENTRICULAR TACHYCARDIA [None]
